FAERS Safety Report 6184803-1 (Version None)
Quarter: 2009Q2

REPORT INFORMATION
  Report Type: 
  Country: None (occurrence: None)
  Receive Date: 20090508
  Receipt Date: 20090429
  Transmission Date: 20091009
  Serious: Yes (Hospitalization, Other)
  Sender: FDA-Public Use
  Company Number: FR-ABBOTT-09P-056-0570763-00

PATIENT
  Age: 29 Year
  Sex: Female

DRUGS (5)
  1. KALETRA [Suspect]
     Indication: HIV INFECTION
     Route: 048
     Dates: start: 20061001
  2. TRUVADA [Interacting]
     Indication: HIV INFECTION
     Route: 048
     Dates: start: 20061001
  3. VELBE [Interacting]
     Indication: HIV INFECTION
     Route: 042
     Dates: start: 20090106
  4. DOXORUBICIN HCL [Concomitant]
     Indication: DRUG USE FOR UNKNOWN INDICATION
     Route: 042
     Dates: start: 20090106
  5. BLEOMYCIN SULFATE [Concomitant]
     Indication: DRUG USE FOR UNKNOWN INDICATION
     Route: 042
     Dates: start: 20090106

REACTIONS (11)
  - APLASIA [None]
  - DIARRHOEA [None]
  - DRUG INTERACTION [None]
  - FEBRILE NEUTROPENIA [None]
  - GASTROINTESTINAL TOXICITY [None]
  - GENERAL PHYSICAL HEALTH DETERIORATION [None]
  - HODGKIN'S DISEASE NODULAR SCLEROSIS STAGE UNSPECIFIED [None]
  - HYPERTHERMIA [None]
  - MUCOSAL INFLAMMATION [None]
  - MYALGIA [None]
  - RECTAL HAEMORRHAGE [None]
